FAERS Safety Report 7545539-5 (Version None)
Quarter: 2011Q2

REPORT INFORMATION
  Report Type: 
  Country: None (occurrence: None)
  Receive Date: 20110525
  Receipt Date: 20110304
  Transmission Date: 20111010
  Serious: No
  Sender: FDA-Public Use
  Company Number: 324362

PATIENT
  Age: 43 Year
  Sex: Male

DRUGS (3)
  1. VICTOZA [Suspect]
     Indication: TYPE 2 DIABETES MELLITUS
     Dosage: 0.6 MG, QD, SUBCUTANEOUS
     Route: 058
     Dates: start: 20101026
  2. METFORMIN HCL [Concomitant]
  3. GABAPENTIN [Concomitant]

REACTIONS (4)
  - MUSCULAR WEAKNESS [None]
  - HYPOAESTHESIA [None]
  - ARTHROPATHY [None]
  - PAIN [None]
